FAERS Safety Report 19879130 (Version 1)
Quarter: 2021Q3

REPORT INFORMATION
  Report Type: Spontaneous
  Country: IE (occurrence: IE)
  Receive Date: 20210924
  Receipt Date: 20210924
  Transmission Date: 20211014
  Serious: Yes (Other)
  Sender: FDA-Public Use
  Company Number: IE-ABBVIE-21K-229-4087280-00

PATIENT
  Age: 8 Year
  Sex: Male

DRUGS (6)
  1. EPILIM [Suspect]
     Active Substance: VALPROATE SODIUM
     Indication: EPILEPSY
     Route: 048
     Dates: start: 20180703
  2. EPILIM [Suspect]
     Active Substance: VALPROATE SODIUM
     Route: 065
  3. EPILIM [Suspect]
     Active Substance: VALPROATE SODIUM
     Indication: EPILEPSY
     Route: 048
     Dates: start: 20180703
  4. VIMPAT [Concomitant]
     Active Substance: LACOSAMIDE
     Indication: PRODUCT USED FOR UNKNOWN INDICATION
     Dosage: 15 MG/ML
  5. EPILIM [Suspect]
     Active Substance: VALPROATE SODIUM
     Route: 065
  6. EPILIM [Suspect]
     Active Substance: VALPROATE SODIUM
     Route: 065

REACTIONS (8)
  - Intentional product misuse [Unknown]
  - Incorrect dose administered [Unknown]
  - Seizure [Recovering/Resolving]
  - Tongue discomfort [Recovering/Resolving]
  - Tongue erythema [Recovering/Resolving]
  - Burning sensation [Recovering/Resolving]
  - Pain [Recovering/Resolving]
  - Tongue haemorrhage [Recovering/Resolving]

NARRATIVE: CASE EVENT DATE: 20180703
